FAERS Safety Report 5816571-4 (Version None)
Quarter: 2008Q3

REPORT INFORMATION
  Report Type: 
  Country: None (occurrence: None)
  Receive Date: 20080721
  Receipt Date: 20080717
  Transmission Date: 20090109
  Serious: Yes (Other)
  Sender: FDA-Public Use
  Company Number: AU-AVENTIS-200815298GDDC

PATIENT
  Age: 47 Year
  Sex: Female

DRUGS (2)
  1. LANTUS [Suspect]
     Route: 058
     Dates: start: 20071015
  2. AUTOPEN INSULIN INJECTION PEN [Suspect]

REACTIONS (1)
  - ARTERIAL OCCLUSIVE DISEASE [None]
